FAERS Safety Report 24444942 (Version 2)
Quarter: 2024Q4

REPORT INFORMATION
  Report Type: Report from Study
  Country: US (occurrence: US)
  Receive Date: 20241016
  Receipt Date: 20241017
  Transmission Date: 20250115
  Serious: No
  Sender: ROCHE
  Company Number: US-ROCHE-2989046

PATIENT
  Age: 53 Year
  Sex: Male

DRUGS (1)
  1. RITUXAN [Suspect]
     Active Substance: RITUXIMAB
     Indication: Pancreatitis chronic
     Dosage: (STRENGTH:10MG/ML)DATE OF TREATMENT:11/FEB/2021,18/FEB/2021,25/FEB/2021,18/MAY/2021,20/JUL/2021,14/S
     Route: 042

REACTIONS (2)
  - Off label use [Unknown]
  - No adverse event [Unknown]
